FAERS Safety Report 25261809 (Version 1)
Quarter: 2025Q2

REPORT INFORMATION
  Report Type: Spontaneous
  Country: MX (occurrence: MX)
  Receive Date: 20250502
  Receipt Date: 20250502
  Transmission Date: 20250716
  Serious: Yes (Death)
  Sender: SANDOZ
  Company Number: MX-002147023-NVSC2025MX070358

PATIENT
  Age: 80 Year
  Sex: Female

DRUGS (1)
  1. EXELON [Suspect]
     Active Substance: RIVASTIGMINE TARTRATE
     Indication: Product used for unknown indication
     Dosage: 1 DOSAGE FORM (ONE PATCH), QD (9 MILLIGRAM, EXTENDED RELEASE)
     Route: 062
     Dates: start: 20241126, end: 20241203

REACTIONS (4)
  - Dysphagia [Fatal]
  - Incontinence [Fatal]
  - Gait inability [Fatal]
  - Decreased appetite [Fatal]
